FAERS Safety Report 24869857 (Version 1)
Quarter: 2025Q1

REPORT INFORMATION
  Report Type: Spontaneous
  Country: NL (occurrence: NL)
  Receive Date: 20250121
  Receipt Date: 20250121
  Transmission Date: 20250409
  Serious: Yes (Life-Threatening, Hospitalization)
  Sender: MYLAN
  Company Number: None

PATIENT
  Age: 50 Year
  Sex: Female
  Weight: 58.3 kg

DRUGS (12)
  1. ROCURONIUM [Suspect]
     Active Substance: ROCURONIUM BROMIDE
     Indication: Preoperative care
     Route: 065
     Dates: start: 20241227
  2. REMIFENTANIL [Suspect]
     Active Substance: REMIFENTANIL
     Indication: Preoperative care
     Route: 065
     Dates: start: 20241227, end: 20241227
  3. KEFZOL [Suspect]
     Active Substance: CEFAZOLIN SODIUM
     Indication: Antibiotic prophylaxis
     Route: 065
     Dates: start: 20241227
  4. ESKETAMINE [Suspect]
     Active Substance: ESKETAMINE
     Indication: Preoperative care
     Route: 065
     Dates: start: 20241227
  5. SUMATRIPTAN [Concomitant]
     Active Substance: SUMATRIPTAN
     Route: 048
  6. FLUTICASONE PROPIONATE [Concomitant]
     Active Substance: FLUTICASONE PROPIONATE
     Route: 045
  7. SULFAMETHOXAZOLE\TRIMETHOPRIM [Concomitant]
     Active Substance: SULFAMETHOXAZOLE\TRIMETHOPRIM
     Route: 048
  8. DEXAMETHASONE [Concomitant]
     Active Substance: DEXAMETHASONE
     Route: 065
  9. MAGNESIUM [Concomitant]
     Active Substance: MAGNESIUM
     Route: 065
  10. ASCORBINEZUUR [Concomitant]
     Route: 065
  11. PROPOFOL [Concomitant]
     Active Substance: PROPOFOL
     Route: 065
  12. LIDOCAINE [Concomitant]
     Active Substance: LIDOCAINE
     Route: 065

REACTIONS (1)
  - Anaphylactic shock [Recovering/Resolving]
